FAERS Safety Report 4304962-2 (Version None)
Quarter: 2004Q1

REPORT INFORMATION
  Report Type: 
  Country: None (occurrence: None)
  Receive Date: 20040226
  Receipt Date: 20040120
  Transmission Date: 20041129
  Serious: No
  Sender: FDA-Public Use
  Company Number: US-GLAXOSMITHKLINE-A0494549A

PATIENT

DRUGS (1)
  1. WELLBUTRIN XL [Suspect]
     Dosage: 150MG UNKNOWN
     Route: 048

REACTIONS (3)
  - BREAST PAIN [None]
  - NIPPLE PAIN [None]
  - NIPPLE SWELLING [None]
